FAERS Safety Report 16478544 (Version 1)
Quarter: 2019Q2

REPORT INFORMATION
  Report Type: Spontaneous
  Country: US (occurrence: US)
  Receive Date: 20190626
  Receipt Date: 20190626
  Transmission Date: 20190711
  Serious: Yes (Other)
  Sender: FDA-Public Use
  Company Number: US-MYLANLABS-2019M1057846

PATIENT
  Age: 65 Year
  Sex: Female
  Weight: 115 kg

DRUGS (2)
  1. POTASSIUM CHLORIDE EXTENDED-RELEASE TABLETS, USP [Suspect]
     Active Substance: POTASSIUM CHLORIDE
     Indication: CARDIAC FAILURE
  2. POTASSIUM CHLORIDE EXTENDED-RELEASE TABLETS, USP [Suspect]
     Active Substance: POTASSIUM CHLORIDE
     Indication: POLYURIA
     Dosage: UNK
     Route: 048

REACTIONS (5)
  - Heart rate decreased [Unknown]
  - Blood potassium decreased [Recovering/Resolving]
  - Weight increased [Unknown]
  - Malaise [Unknown]
  - Product residue present [Unknown]

NARRATIVE: CASE EVENT DATE: 201902
